FAERS Safety Report 10252695 (Version 1)
Quarter: 2014Q2

REPORT INFORMATION
  Report Type: Spontaneous
  Country: US (occurrence: US)
  Receive Date: 20140623
  Receipt Date: 20140623
  Transmission Date: 20141212
  Serious: Yes (Other)
  Sender: FDA-Public Use
  Company Number: US-ACTAVIS-2014-12946

PATIENT
  Sex: Female

DRUGS (1)
  1. CLOTRIMAZOLE-BETAMETHASONE (AMALLC) [Suspect]
     Indication: ONYCHOMYCOSIS
     Dosage: UNK UNK, UNKNOWN
     Route: 061

REACTIONS (7)
  - Surgery [Unknown]
  - Drug ineffective [Unknown]
  - Off label use [Unknown]
  - Pain in extremity [Unknown]
  - Inappropriate schedule of drug administration [Unknown]
  - Peripheral swelling [None]
  - Nail operation [None]
